FAERS Safety Report 8443199 (Version 3)
Quarter: 2013Q2

REPORT INFORMATION
  Report Type: Spontaneous
  Country: US (occurrence: None)
  Receive Date: 20120224
  Receipt Date: 20130408
  Transmission Date: 20140414
  Serious: Yes (Other)
  Sender: FDA-Public Use
  Company Number: AUR-APL-2012-01017

PATIENT
  Age: 83 Year
  Sex: Male
  Weight: 69.39 kg

DRUGS (10)
  1. MELOXICAM [Suspect]
     Indication: PRODUCT USED FOR UNKNOWN INDICATION
     Dosage: 7.5 MG
  2. LYRICA [Suspect]
     Indication: NEURALGIA
     Dosage: 150 MG (150 MG, 1 IN 1 D), ORAL
     Route: 048
     Dates: start: 20120210, end: 20120212
  3. IBUPROFEN [Suspect]
     Indication: PRODUCT USED FOR UNKNOWN INDICATION
  4. CARVEDILOL [Concomitant]
  5. SIMVASTATIN [Concomitant]
  6. GLYBURIDE [Concomitant]
  7. ACETYLSALICYLIC ACID (ACETYLSALICYLIC ACID) [Concomitant]
  8. XALATAN [Concomitant]
  9. COENZYME Q10 [Concomitant]
  10. FENTANYL [Concomitant]

REACTIONS (11)
  - DIPLOPIA [None]
  - DIZZINESS [None]
  - CEREBROVASCULAR ACCIDENT [None]
  - INTRAOCULAR PRESSURE INCREASED [None]
  - GASTRITIS [None]
  - BLINDNESS UNILATERAL [None]
  - VISION BLURRED [None]
  - HETEROPHORIA [None]
  - PUPILLARY REFLEX IMPAIRED [None]
  - CORNEAL DYSTROPHY [None]
  - CONDITION AGGRAVATED [None]
